FAERS Safety Report 8959655 (Version 1)
Quarter: 2012Q4

REPORT INFORMATION
  Report Type: 
  Country: IT (occurrence: IT)
  Receive Date: 20121211
  Receipt Date: 20121211
  Transmission Date: 20130627
  Serious: Yes (Hospitalization)
  Sender: FDA-Public Use
  Company Number: IT-BAYER-2012-129748

PATIENT
  Age: 74 Year
  Sex: Female

DRUGS (7)
  1. CARDIOASPIRIN [Suspect]
     Indication: PROPHYLAXIS
     Dosage: 100 mg, QD
     Route: 048
     Dates: start: 20100101, end: 20121026
  2. DELTACORTENE [Suspect]
     Indication: RADICULAR PAIN
     Dosage: Daily dose 5 mg
     Route: 048
     Dates: start: 20121005, end: 20121012
  3. OXYCODONE [Concomitant]
     Dosage: Daily dose 30 mg
  4. LYRICA [Concomitant]
     Dosage: Daily dose 50 mg
     Dates: start: 20121011, end: 20121126
  5. GLICOREST [Concomitant]
     Dosage: Daily dose 1515 mg
  6. ASACOL [Concomitant]
     Dosage: Daily dose 2400 mg
     Dates: start: 20040101, end: 20121126
  7. GLUCOPHAGE [Concomitant]
     Dosage: Daily dose 1000 mg
     Dates: start: 20050101, end: 20121126

REACTIONS (3)
  - Anaemia [Recovering/Resolving]
  - Duodenal ulcer [Recovering/Resolving]
  - Gastritis erosive [Recovering/Resolving]
